FAERS Safety Report 9507057 (Version 1)
Quarter: 2013Q1

REPORT INFORMATION
  Report Type: Spontaneous
  Country: US (occurrence: None)
  Receive Date: 20130305
  Receipt Date: 20130305
  Transmission Date: 20140127
  Serious: Yes (Hospitalization)
  Sender: FDA-Public Use
  Company Number: 163-21880-12051319

PATIENT
  Age: 80 Year
  Sex: Male
  Weight: 56.25 kg

DRUGS (1)
  1. REVLIMID [Suspect]
     Indication: PLASMA CELL MYELOMA
     Dosage: 10 MG, 1 IN 1 D, PO?
     Route: 048
     Dates: start: 20120417

REACTIONS (4)
  - Rash generalised [None]
  - Rash pruritic [None]
  - Constipation [None]
  - Decreased appetite [None]
